FAERS Safety Report 13617344 (Version 1)
Quarter: 2017Q2

REPORT INFORMATION
  Report Type: Spontaneous
  Country: US (occurrence: US)
  Receive Date: 20170606
  Receipt Date: 20170606
  Transmission Date: 20170830
  Serious: No
  Sender: FDA-Public Use
  Company Number: US-SA-2017SA020429

PATIENT
  Age: 71 Year
  Sex: Female

DRUGS (2)
  1. LANTUS SOLOSTAR [Suspect]
     Active Substance: INSULIN GLARGINE
     Indication: TYPE 2 DIABETES MELLITUS
     Dosage: DOSE: BETWEEN 5 AND 25 TO EQUAL 30 UNITS A DAY
     Route: 065
     Dates: start: 201701
  2. SOLOSTAR [Concomitant]
     Active Substance: DEVICE
     Indication: TYPE 2 DIABETES MELLITUS
     Route: 065
     Dates: start: 201701

REACTIONS (4)
  - Accident [Unknown]
  - Blood glucose increased [Unknown]
  - Product use issue [Unknown]
  - Joint injury [Unknown]

NARRATIVE: CASE EVENT DATE: 2017
